FAERS Safety Report 9492128 (Version 2)
Quarter: 2013Q4

REPORT INFORMATION
  Report Type: Spontaneous
  Country: US (occurrence: US)
  Receive Date: 20130830
  Receipt Date: 20131223
  Transmission Date: 20140711
  Serious: Yes (Death)
  Sender: FDA-Public Use
  Company Number: US-INCYTE CORPORATION-2013IN001949

PATIENT
  Age: 54 Year
  Sex: Female

DRUGS (3)
  1. JAKAFI [Suspect]
     Indication: MYELOFIBROSIS
     Dosage: 20 MG, QD
     Route: 048
     Dates: start: 20120423
  2. WARFARIN [Concomitant]
  3. FLUTICASONE SPRAY [Concomitant]

REACTIONS (1)
  - Death [Fatal]
